FAERS Safety Report 17418743 (Version 1)
Quarter: 2020Q1

REPORT INFORMATION
  Report Type: Spontaneous
  Country: US (occurrence: US)
  Receive Date: 20200214
  Receipt Date: 20200214
  Transmission Date: 20200409
  Serious: Yes (Hospitalization)
  Sender: FDA-Public Use
  Company Number: US-ASTRAZENECA-2020SE21495

PATIENT
  Age: 361 Day
  Sex: Female

DRUGS (1)
  1. SYNAGIS [Suspect]
     Active Substance: PALIVIZUMAB
     Dosage: ONE INJECTION100.0MG/ML UNKNOWN
     Route: 030

REACTIONS (4)
  - Pyrexia [Unknown]
  - Pneumonia [Unknown]
  - Distal intestinal obstruction syndrome [Unknown]
  - Cystic fibrosis [Unknown]

NARRATIVE: CASE EVENT DATE: 20200207
